FAERS Safety Report 13300238 (Version 3)
Quarter: 2018Q1

REPORT INFORMATION
  Report Type: Report from Study
  Country: US (occurrence: US)
  Receive Date: 20170307
  Receipt Date: 20180226
  Transmission Date: 20180508
  Serious: Yes (Hospitalization, Other)
  Sender: FDA-Public Use
  Company Number: PHHY2016US181868

PATIENT
  Age: 39 Year
  Sex: Male
  Weight: 66.79 kg

DRUGS (23)
  1. TOBI PODHALER [Suspect]
     Active Substance: TOBRAMYCIN
     Indication: CYSTIC FIBROSIS
     Dosage: 112 OT, BID
     Route: 055
     Dates: start: 20160523, end: 20160619
  2. CAYSTON [Suspect]
     Active Substance: AZTREONAM
     Dosage: 75 OT, UNK
     Route: 065
     Dates: start: 20170401, end: 20170428
  3. ALBUTEROL. [Concomitant]
     Active Substance: ALBUTEROL
     Indication: INFECTIVE PULMONARY EXACERBATION OF CYSTIC FIBROSIS
     Dosage: 2.5 MG, BID (NEBULIZATION)
     Route: 065
     Dates: start: 20161206, end: 20161218
  4. AZITHROMYCIN ANHYDROUS. [Concomitant]
     Active Substance: AZITHROMYCIN ANHYDROUS
     Indication: INFECTIVE PULMONARY EXACERBATION OF CYSTIC FIBROSIS
     Dosage: 500 MG, TIW (MONDAY WEDNESDAY + FRIDAY)
     Route: 048
     Dates: start: 20161204, end: 20161218
  5. TOBI [Suspect]
     Active Substance: TOBRAMYCIN
     Indication: CYSTIC FIBROSIS
     Dosage: 300 OT, BID
     Route: 055
     Dates: start: 20161108, end: 20161205
  6. TOBI PODHALER [Suspect]
     Active Substance: TOBRAMYCIN
     Dosage: 112 OT, BID
     Route: 055
     Dates: start: 20170301, end: 20170328
  7. CAYSTON [Suspect]
     Active Substance: AZTREONAM
     Dosage: 75 OT, UNK
     Route: 065
     Dates: start: 20170117, end: 20170213
  8. CAYSTON [Suspect]
     Active Substance: AZTREONAM
     Indication: PSEUDOMONAS INFECTION
     Dosage: 75 MG, TID
     Route: 065
     Dates: start: 20160620, end: 20160717
  9. CAYSTON [Suspect]
     Active Substance: AZTREONAM
     Dosage: 75 OT, TID
     Route: 065
     Dates: start: 20160910, end: 20161007
  10. TOBI PODHALER [Suspect]
     Active Substance: TOBRAMYCIN
     Dosage: 112 OT, BID
     Route: 055
     Dates: start: 20161022, end: 20161119
  11. TOBI PODHALER [Suspect]
     Active Substance: TOBRAMYCIN
     Dosage: 112 OT, BID
     Route: 055
     Dates: start: 20161219, end: 20170115
  12. TOBI [Suspect]
     Active Substance: TOBRAMYCIN
     Indication: PSEUDOMONAS INFECTION
  13. TOBI PODHALER [Suspect]
     Active Substance: TOBRAMYCIN
     Dosage: 112 UNK, UNK
     Route: 055
     Dates: start: 20170601, end: 20170628
  14. CAYSTON [Suspect]
     Active Substance: AZTREONAM
     Dosage: 75 OT, UNK
     Route: 065
     Dates: start: 20170701, end: 20170728
  15. INSULIN [Concomitant]
     Active Substance: INSULIN NOS
     Indication: CYSTIC FIBROSIS RELATED DIABETES
     Dosage: 6.8 U, WITH MEALS
     Route: 065
     Dates: start: 20161206, end: 20161218
  16. TOBI PODHALER [Suspect]
     Active Substance: TOBRAMYCIN
     Indication: PSEUDOMONAS INFECTION
     Dosage: 2 DF (112), QD/ALTERNATIVE MONTHS
     Route: 055
     Dates: start: 20160718, end: 20160814
  17. CAYSTON [Suspect]
     Active Substance: AZTREONAM
     Indication: CYSTIC FIBROSIS
     Dosage: 75 OT, TID
     Route: 065
     Dates: start: 20160425, end: 20160522
  18. CAYSTON [Suspect]
     Active Substance: AZTREONAM
     Dosage: 75 OT, TID
     Route: 065
     Dates: start: 20161120, end: 20161206
  19. IPRATROPIUM BROMIDE. [Concomitant]
     Active Substance: IPRATROPIUM BROMIDE
     Indication: INFECTIVE PULMONARY EXACERBATION OF CYSTIC FIBROSIS
     Dosage: 2.5 ML, BID (NEBULIZATION)
     Route: 065
     Dates: start: 20160711
  20. ZENPEP [Concomitant]
     Active Substance: PANCRELIPASE AMYLASE\PANCRELIPASE LIPASE\PANCRELIPASE PROTEASE
     Indication: PANCREATIC FAILURE
     Dosage: 20000 UNITS CAPSULE, 600 WITH MEALS
     Route: 065
     Dates: start: 20150915, end: 20161218
  21. HUMALOG [Concomitant]
     Active Substance: INSULIN LISPRO
     Indication: CYSTIC FIBROSIS RELATED DIABETES
     Dosage: 6-8 UNITS WITH MEALS
     Route: 065
     Dates: start: 20151222, end: 20161218
  22. PULMOZYME [Concomitant]
     Active Substance: DORNASE ALFA
     Indication: CYSTIC FIBROSIS LUNG
     Dosage: 2.5 MG, BID (NEBULIZATION)
     Route: 065
     Dates: start: 20161206, end: 20161218
  23. MAGNESIUM [Concomitant]
     Active Substance: MAGNESIUM
     Indication: SUPPLEMENTATION THERAPY
     Dosage: UNK UNK, PRN (BSAE ON SERUM MAGNESIUM LEVEL)
     Route: 065
     Dates: start: 20161206, end: 20161218

REACTIONS (17)
  - Chest pain [Unknown]
  - Infective pulmonary exacerbation of cystic fibrosis [Recovered/Resolved]
  - Aspergillus infection [Unknown]
  - Infective pulmonary exacerbation of cystic fibrosis [Recovered/Resolved]
  - Pulmonary oedema [Unknown]
  - Productive cough [Unknown]
  - Sputum discoloured [Unknown]
  - Blood pressure systolic decreased [Unknown]
  - Cough [Unknown]
  - Infective pulmonary exacerbation of cystic fibrosis [Recovered/Resolved]
  - Candida infection [Unknown]
  - Obstructive airways disorder [Unknown]
  - Pseudomonas infection [Unknown]
  - Infective pulmonary exacerbation of cystic fibrosis [Recovered/Resolved]
  - Infective pulmonary exacerbation of cystic fibrosis [Recovered/Resolved]
  - Dyspnoea [Unknown]
  - Drug resistance [Unknown]

NARRATIVE: CASE EVENT DATE: 20161021
